FAERS Safety Report 23224451 (Version 3)
Quarter: 2023Q4

REPORT INFORMATION
  Report Type: Spontaneous
  Country: US (occurrence: US)
  Receive Date: 20231124
  Receipt Date: 20231227
  Transmission Date: 20240110
  Serious: Yes (Other)
  Sender: FDA-Public Use
  Company Number: US-APOTEX-2023AP016762

PATIENT
  Age: 3 Week
  Sex: Female

DRUGS (5)
  1. FOSPHENYTOIN [Suspect]
     Active Substance: FOSPHENYTOIN
     Indication: Neonatal seizure
     Dosage: 6 MG/KG DIVIDED TWICE DAILY
     Route: 042
     Dates: start: 20220128, end: 20220129
  2. PHENOBARBITAL [Suspect]
     Active Substance: PHENOBARBITAL
     Indication: Neonatal seizure
     Dosage: 6 MG/KG/DAY (MILLIGRAM PER KILOGRAM PER DAY) DIVIDED TWICE DAILY
     Route: 042
  3. LEVETIRACETAM [Suspect]
     Active Substance: LEVETIRACETAM
     Indication: Neonatal seizure
     Dosage: 100 MG/KG/DAY DIVIDED TWICE DAILY)
     Route: 042
  4. LACOSAMIDE [Suspect]
     Active Substance: LACOSAMIDE
     Indication: Neonatal seizure
     Dosage: 2.1 MILLIGRAM/KILOGRAM (LOADING DOSE)
     Route: 065
     Dates: start: 20220128, end: 20220129
  5. PYRIDOXINE [Suspect]
     Active Substance: PYRIDOXINE
     Indication: Neonatal seizure
     Dosage: UNK
     Route: 065

REACTIONS (2)
  - Cardiac arrest [Recovered/Resolved]
  - Atrioventricular block second degree [Recovered/Resolved]
